FAERS Safety Report 23652363 (Version 1)
Quarter: 2024Q1

REPORT INFORMATION
  Report Type: Spontaneous
  Country: PL (occurrence: PL)
  Receive Date: 20240320
  Receipt Date: 20240320
  Transmission Date: 20240410
  Serious: Yes (Other)
  Sender: FDA-Public Use
  Company Number: PL-ALKEM LABORATORIES LIMITED-PL-ALKEM-2024-03047

PATIENT
  Age: 31 Year
  Sex: Female

DRUGS (8)
  1. LEVETIRACETAM [Suspect]
     Active Substance: LEVETIRACETAM
     Indication: Epilepsy
     Dosage: 500 MILLIGRAM, BID
     Route: 065
  2. LEVETIRACETAM [Suspect]
     Active Substance: LEVETIRACETAM
     Dosage: 1000 MILLIGRAM, BID
     Route: 065
  3. LACOSAMIDE [Suspect]
     Active Substance: LACOSAMIDE
     Indication: Epilepsy
     Dosage: 50 MILLIGRAM, ONCE IN 2 WEEKS
     Route: 065
  4. LACOSAMIDE [Suspect]
     Active Substance: LACOSAMIDE
     Dosage: 100 MILLIGRAM, BID
     Route: 065
  5. LACOSAMIDE [Suspect]
     Active Substance: LACOSAMIDE
     Dosage: 200 MILLIGRAM, BID (CONCEPTION)
     Route: 065
  6. LACOSAMIDE [Suspect]
     Active Substance: LACOSAMIDE
     Dosage: 400 MILLIGRAM (AT DELIVERY)
     Route: 065
  7. LACOSAMIDE [Suspect]
     Active Substance: LACOSAMIDE
     Dosage: 300 MILLIGRAM (AT BREAST FEEDING)
     Route: 065
  8. FOLIC ACID [Concomitant]
     Active Substance: FOLIC ACID
     Indication: Product used for unknown indication
     Dosage: 0.4 MILLIGRAM, QD
     Route: 065

REACTIONS (3)
  - Exposure during pregnancy [Unknown]
  - Maternal exposure during breast feeding [Unknown]
  - Abortion induced [Unknown]
